FAERS Safety Report 5786372-4 (Version None)
Quarter: 2008Q2

REPORT INFORMATION
  Report Type: 
  Country: None (occurrence: None)
  Receive Date: 20080624
  Receipt Date: 20080612
  Transmission Date: 20081010
  Serious: Yes (Other)
  Sender: FDA-Public Use
  Company Number: US-BAYER-200825603NA

PATIENT
  Age: 15 Year
  Sex: Female

DRUGS (1)
  1. MAGNEVIST [Suspect]
     Indication: ARTHROGRAM
     Route: 065
     Dates: start: 20060905, end: 20060905

REACTIONS (3)
  - DIZZINESS [None]
  - HEADACHE [None]
  - RENAL IMPAIRMENT [None]
